FAERS Safety Report 11629824 (Version 2)
Quarter: 2015Q4

REPORT INFORMATION
  Report Type: Spontaneous
  Country: US (occurrence: US)
  Receive Date: 20151014
  Receipt Date: 20151209
  Transmission Date: 20160304
  Serious: No
  Sender: FDA-Public Use
  Company Number: US-PFIZER INC-2015337649

PATIENT
  Age: 73 Year
  Sex: Female
  Weight: 64.4 kg

DRUGS (12)
  1. APIDRA [Concomitant]
     Active Substance: INSULIN GLULISINE
     Indication: DIABETES MELLITUS
     Dosage: 20 DF, UNK (20 UNITS SUBCUTANEOUS INJECTION BEFORE EACH MEAL)
     Route: 058
  2. EFFEXOR XR [Suspect]
     Active Substance: VENLAFAXINE HYDROCHLORIDE
     Indication: DEPRESSION
     Dosage: 300 MG, DAILY (TWO 150MG CAPSULES BY MOUTH DAILY AT NIGHT)
     Route: 048
     Dates: start: 2005
  3. EFFEXOR XR [Suspect]
     Active Substance: VENLAFAXINE HYDROCHLORIDE
     Indication: SMOKING CESSATION THERAPY
  4. ASPIRIN. [Concomitant]
     Active Substance: ASPIRIN
     Dosage: 81 MG, DAILY
     Route: 048
  5. LANTUS [Concomitant]
     Active Substance: INSULIN GLARGINE
     Indication: DIABETES MELLITUS
     Dosage: 40 DF, 1X/DAY (40 UNITS SUBCUTANEOUS INJECTION AT NIGHT)
     Route: 058
  6. GLEEVEC [Concomitant]
     Active Substance: IMATINIB MESYLATE
     Indication: LEUKAEMIA
     Dosage: 400 MG, 1X/DAY (ONE TABLET BY MOUTH NIGHTLY)
     Route: 048
     Dates: start: 200101
  7. CENTRAVIT [Concomitant]
     Indication: VITAMIN SUPPLEMENTATION
     Dosage: 1 DF, DAILY
     Route: 048
     Dates: end: 20151006
  8. LYRICA [Concomitant]
     Active Substance: PREGABALIN
     Indication: MUSCLE SPASMS
     Dosage: 200 MG, DAILY
     Route: 048
     Dates: start: 2003
  9. AMOXICILLIN AND CLAVULANATE POTASSIUM [Concomitant]
     Active Substance: AMOXICILLIN\CLAVULANATE POTASSIUM
     Indication: SINUSITIS
     Dosage: UNK UNK, 2X/DAY
     Route: 048
     Dates: start: 20150929
  10. LYRICA [Concomitant]
     Active Substance: PREGABALIN
     Indication: PAIN IN EXTREMITY
  11. TRAZODONE [Concomitant]
     Active Substance: TRAZODONE HYDROCHLORIDE
     Indication: ANXIETY
     Dosage: 100 MG, 1X/DAY (TWO TABLETS BY MOUTH EVERY NIGHT AT BEDTIME)
     Route: 048
  12. LISINOPRIL. [Concomitant]
     Active Substance: LISINOPRIL
     Indication: DIABETES MELLITUS
     Dosage: 5 MG, DAILY
     Route: 048
     Dates: start: 2003

REACTIONS (7)
  - Lethargy [Recovering/Resolving]
  - Activities of daily living impaired [Recovering/Resolving]
  - Tremor [Recovering/Resolving]
  - Drug dose omission [Recovered/Resolved]
  - Drug ineffective for unapproved indication [Not Recovered/Not Resolved]
  - Somnolence [Recovered/Resolved]
  - Depression [Recovering/Resolving]

NARRATIVE: CASE EVENT DATE: 2005
